FAERS Safety Report 16939090 (Version 1)
Quarter: 2019Q4

REPORT INFORMATION
  Report Type: Report from Study
  Country: None (occurrence: AU)
  Receive Date: 20191020
  Receipt Date: 20191020
  Transmission Date: 20200122
  Serious: Yes (Other)
  Sender: FDA-Public Use
  Company Number: AU-ABBVIE-19K-008-2967061-00

PATIENT
  Age: 70 Year
  Sex: Male
  Weight: 81 kg

DRUGS (3)
  1. LUCRIN DEPOT [Suspect]
     Active Substance: LEUPROLIDE ACETATE
     Indication: PROSTATE CANCER
     Route: 030
  2. ZOLADEX [Concomitant]
     Active Substance: GOSERELIN ACETATE
     Indication: PRODUCT USED FOR UNKNOWN INDICATION
  3. LUCRIN DEPOT [Suspect]
     Active Substance: LEUPROLIDE ACETATE
     Route: 030
     Dates: start: 201904

REACTIONS (7)
  - Bone pain [Unknown]
  - Muscular weakness [Unknown]
  - Weight increased [Unknown]
  - Bone cancer [Unknown]
  - Urinary incontinence [Unknown]
  - Prostatic specific antigen increased [Unknown]
  - Muscle fatigue [Unknown]

NARRATIVE: CASE EVENT DATE: 201904
